FAERS Safety Report 17648650 (Version 1)
Quarter: 2020Q2

REPORT INFORMATION
  Report Type: Spontaneous
  Country: FR (occurrence: FR)
  Receive Date: 20200409
  Receipt Date: 20200409
  Transmission Date: 20200713
  Serious: Yes (Hospitalization)
  Sender: FDA-Public Use
  Company Number: FR-VIIV HEALTHCARE LIMITED-FR2020061154

PATIENT
  Age: 26 Day
  Sex: Male
  Weight: 5 kg

DRUGS (6)
  1. RETROVIR [Suspect]
     Active Substance: ZIDOVUDINE
     Indication: HIV TEST POSITIVE
     Dosage: 24 MG/KG, QD, 05 / 02-10 / 03] 34 MG / D; [10 / 03-] 54MG / D
     Route: 048
     Dates: start: 20200115, end: 20200205
  2. EPIVIR [Suspect]
     Active Substance: LAMIVUDINE
     Dosage: 4 MG/KG, QD, 4MG / KG / D
     Route: 048
     Dates: start: 20200115, end: 20200205
  3. EPIVIR [Suspect]
     Active Substance: LAMIVUDINE
     Dosage: 27 MG, QD, 27MG / D
     Route: 048
     Dates: start: 20200310
  4. ISENTRESS [Suspect]
     Active Substance: RALTEGRAVIR POTASSIUM
     Indication: HIV TEST POSITIVE
     Dosage: 6 MG/KG, 6 MG / KG 2 / D
     Route: 048
     Dates: start: 20200115
  5. EPIVIR [Suspect]
     Active Substance: LAMIVUDINE
     Indication: HIV TEST POSITIVE
     Dosage: 6 MG, QD, 6MG PER DAY
     Route: 048
     Dates: start: 20200110, end: 20200115
  6. EPIVIR [Suspect]
     Active Substance: LAMIVUDINE
     Dosage: 17 MG, QD, 17 MG / D
     Route: 048
     Dates: start: 20200205, end: 20200310

REACTIONS (1)
  - Metabolic acidosis [Recovering/Resolving]

NARRATIVE: CASE EVENT DATE: 20200205
